FAERS Safety Report 7295017-6 (Version None)
Quarter: 2011Q1

REPORT INFORMATION
  Report Type: 
  Country: None (occurrence: None)
  Receive Date: 20110216
  Receipt Date: 20110207
  Transmission Date: 20110831
  Serious: Yes (Other)
  Sender: FDA-Public Use
  Company Number: US-JNJFOC-20110105576

PATIENT
  Sex: Female
  Weight: 64.86 kg

DRUGS (7)
  1. REMICADE [Suspect]
     Indication: PSORIATIC ARTHROPATHY
     Dosage: DOSE REPORTED 400-500, 5-7.5 MG/KG
     Route: 042
  2. KLONOPIN [Concomitant]
  3. REMICADE [Suspect]
     Dosage: DOSE REPORTED 400-500, 5-7.5 MG/KG
     Route: 042
  4. LEXAPRO [Concomitant]
  5. ASPIRIN [Concomitant]
  6. DOVONEX [Concomitant]
  7. REMICADE [Suspect]
     Dosage: DOSE REPORTED 400-500, 5-7.5 MG/KG
     Route: 042

REACTIONS (2)
  - T-CELL LYMPHOMA [None]
  - DRUG INEFFECTIVE [None]
